FAERS Safety Report 10959456 (Version 2)
Quarter: 2015Q2

REPORT INFORMATION
  Report Type: Spontaneous
  Country: US (occurrence: US)
  Receive Date: 20150327
  Receipt Date: 20150524
  Transmission Date: 20150821
  Serious: No
  Sender: FDA-Public Use
  Company Number: US-JNJFOC-20141112738

PATIENT
  Sex: Female
  Weight: 113.4 kg

DRUGS (1)
  1. UNSPECIFIED GENERIC FENTANYL [Suspect]
     Active Substance: FENTANYL
     Indication: PAIN
     Route: 062
     Dates: start: 2014, end: 2014

REACTIONS (3)
  - Pain [Unknown]
  - Drug withdrawal syndrome [Unknown]
  - Drug ineffective [Unknown]

NARRATIVE: CASE EVENT DATE: 2014
